FAERS Safety Report 6021173-3 (Version None)
Quarter: 2008Q4

REPORT INFORMATION
  Report Type: 
  Country: None (occurrence: None)
  Receive Date: 20081229
  Receipt Date: 20081217
  Transmission Date: 20090506
  Serious: Yes (Other)
  Sender: FDA-Public Use
  Company Number: US-PFIZER INC-2008085295

PATIENT
  Sex: Female
  Weight: 77.098 kg

DRUGS (3)
  1. ZYVOX [Suspect]
     Dosage: 600 MG, 2X/DAY
     Route: 048
     Dates: start: 20081005, end: 20081006
  2. ENALAPRIL [Concomitant]
     Indication: BLOOD PRESSURE
  3. OXYCODONE [Concomitant]

REACTIONS (7)
  - ABSCESS ORAL [None]
  - ADVERSE DRUG REACTION [None]
  - HYPOAESTHESIA ORAL [None]
  - LIP SWELLING [None]
  - PARAESTHESIA ORAL [None]
  - PHARYNGEAL OEDEMA [None]
  - SWOLLEN TONGUE [None]
